FAERS Safety Report 16418776 (Version 8)
Quarter: 2020Q3

REPORT INFORMATION
  Report Type: Spontaneous
  Country: NL (occurrence: NL)
  Receive Date: 20190612
  Receipt Date: 20200722
  Transmission Date: 20201102
  Serious: Yes (Hospitalization, Other)
  Sender: FDA-Public Use
  Company Number: NL-AUROBINDO-AUR-APL-2019-032898

PATIENT
  Age: 79 Year
  Sex: Female
  Weight: 69 kg

DRUGS (31)
  1. FLECAINIDE [Concomitant]
     Active Substance: FLECAINIDE
     Indication: PRODUCT USED FOR UNKNOWN INDICATION
     Dosage: UNK
     Route: 048
     Dates: start: 201706
  2. FUROSEMIDE. [Concomitant]
     Active Substance: FUROSEMIDE
     Dosage: UNK
     Route: 065
     Dates: start: 20191206, end: 20191209
  3. PANTOPRAZOLE [Concomitant]
     Active Substance: PANTOPRAZOLE
     Indication: PRODUCT USED FOR UNKNOWN INDICATION
     Dosage: UNK
     Route: 048
     Dates: start: 201706
  4. NIFEDIPINE. [Concomitant]
     Active Substance: NIFEDIPINE
     Indication: PRODUCT USED FOR UNKNOWN INDICATION
     Dosage: UNK
     Route: 048
     Dates: start: 20191207
  5. UPTRAVI [Suspect]
     Active Substance: SELEXIPAG
     Indication: PULMONARY ARTERIAL HYPERTENSION
     Dosage: 400 MICROGRAM, ONCE A DAY
     Route: 048
     Dates: start: 20180902, end: 20180909
  6. UPTRAVI [Suspect]
     Active Substance: SELEXIPAG
     Dosage: 800 MICROGRAM, TWO TIMES A DAY
     Route: 048
     Dates: start: 20180929, end: 20181005
  7. PRAVASTATIN. [Concomitant]
     Active Substance: PRAVASTATIN
     Indication: PRODUCT USED FOR UNKNOWN INDICATION
     Dosage: UNK
     Route: 048
     Dates: start: 201706
  8. METOPROLOL. [Concomitant]
     Active Substance: METOPROLOL
     Indication: PRODUCT USED FOR UNKNOWN INDICATION
     Dosage: UNK
     Route: 048
     Dates: start: 201706
  9. FUROSEMIDE. [Concomitant]
     Active Substance: FUROSEMIDE
     Dosage: UNK
     Route: 048
     Dates: start: 2017
  10. CANDESARTAN CILEXETIL;HYDROCHLOROTHIAZIDE [Concomitant]
     Active Substance: CANDESARTAN CILEXETIL\HYDROCHLOROTHIAZIDE
     Indication: PRODUCT USED FOR UNKNOWN INDICATION
     Dosage: UNK
     Route: 048
     Dates: start: 201706
  11. ADCIRCA [Concomitant]
     Active Substance: TADALAFIL
     Indication: PULMONARY ARTERIAL HYPERTENSION
     Dosage: 40 MILLIGRAM, ONCE A DAY
     Route: 048
     Dates: start: 20180207
  12. CETIRIZINE [Concomitant]
     Active Substance: CETIRIZINE HYDROCHLORIDE
     Indication: PRODUCT USED FOR UNKNOWN INDICATION
     Dosage: UNK
     Route: 065
  13. UPTRAVI [Suspect]
     Active Substance: SELEXIPAG
     Dosage: 600 MICROGRAM, TWO TIMES A DAY
     Route: 048
     Dates: start: 20181005
  14. OXYGEN. [Concomitant]
     Active Substance: OXYGEN
     Indication: PULMONARY ARTERIAL HYPERTENSION
     Dosage: UNK
     Route: 055
     Dates: start: 20170602
  15. BARNIDIPINE [Concomitant]
     Active Substance: BARNIDIPINE
     Dosage: UNK
     Route: 048
     Dates: start: 20181213
  16. MOMETASONE [Concomitant]
     Active Substance: MOMETASONE
     Indication: PRODUCT USED FOR UNKNOWN INDICATION
     Dosage: UNK
     Route: 055
     Dates: start: 201706
  17. ACENOCOUMAROL [Concomitant]
     Active Substance: ACENOCOUMAROL
     Indication: PRODUCT USED FOR UNKNOWN INDICATION
     Dosage: UNK
     Route: 048
     Dates: start: 201706
  18. CANDESARTAN CILEXETIL;HYDROCHLOROTHIAZIDE [Concomitant]
     Active Substance: CANDESARTAN CILEXETIL\HYDROCHLOROTHIAZIDE
     Indication: PRODUCT USED FOR UNKNOWN INDICATION
     Dosage: UNK
     Route: 048
     Dates: start: 201706, end: 2018
  19. UPTRAVI [Suspect]
     Active Substance: SELEXIPAG
     Dosage: 1200 MICROGRAM, ONCE A DAY
     Route: 048
     Dates: start: 20180916, end: 20180929
  20. FUROSEMIDE. [Concomitant]
     Active Substance: FUROSEMIDE
     Dosage: 2 DOSAGE FORM, ONCE A DAY
     Route: 048
  21. COLECALCIFEROL [Concomitant]
     Active Substance: CHOLECALCIFEROL
     Indication: PRODUCT USED FOR UNKNOWN INDICATION
     Dosage: UNK
     Route: 048
     Dates: start: 201706
  22. LEVOCETIRIZINE [Concomitant]
     Active Substance: LEVOCETIRIZINE
     Indication: PRODUCT USED FOR UNKNOWN INDICATION
     Dosage: UNK
     Route: 048
     Dates: start: 201706
  23. SILDENAFIL FILM?COATED TABLET [Suspect]
     Active Substance: SILDENAFIL
     Indication: PULMONARY ARTERIAL HYPERTENSION
     Dosage: 20 MILLIGRAM, ONCE A DAY
     Route: 048
     Dates: start: 20171206, end: 20180130
  24. UPTRAVI [Suspect]
     Active Substance: SELEXIPAG
     Dosage: 800 MICROGRAM, ONCE A DAY
     Route: 048
     Dates: start: 20180909, end: 20180916
  25. BARNIDIPINE [Concomitant]
     Active Substance: BARNIDIPINE
     Indication: PRODUCT USED FOR UNKNOWN INDICATION
     Dosage: UNK
     Route: 048
     Dates: start: 201706
  26. TIOTROPIUM [Concomitant]
     Active Substance: TIOTROPIUM
     Indication: PRODUCT USED FOR UNKNOWN INDICATION
     Dosage: UNK
     Route: 055
     Dates: start: 20170828
  27. CETOMACROGOL;PARAFFIN, LIQUID;PROPYLENE GLYCOL;WHITE SOFT PARAFFIN [Concomitant]
     Indication: PRODUCT USED FOR UNKNOWN INDICATION
     Dosage: UNK
     Route: 061
     Dates: start: 201706
  28. OPSUMIT [Suspect]
     Active Substance: MACITENTAN
     Indication: PULMONARY ARTERIAL HYPERTENSION
     Dosage: 10 MILLIGRAM, ONCE A DAY
     Route: 048
     Dates: start: 20170920
  29. FUROSEMIDE. [Concomitant]
     Active Substance: FUROSEMIDE
     Indication: DYSPNOEA
     Dosage: 80 MILLIGRAM, ONCE A DAY
     Route: 048
  30. SPIRONOLACTONE. [Concomitant]
     Active Substance: SPIRONOLACTONE
     Indication: DYSPNOEA
     Dosage: UNK
     Route: 048
     Dates: start: 20181114
  31. FLUTICASONE. [Concomitant]
     Active Substance: FLUTICASONE
     Indication: PRODUCT USED FOR UNKNOWN INDICATION
     Dosage: UNK
     Route: 050
     Dates: start: 20191207

REACTIONS (21)
  - Disease progression [Recovering/Resolving]
  - Constipation [Unknown]
  - Pulmonary oedema [Unknown]
  - Hypoxia [Recovering/Resolving]
  - Hypotension [Not Recovered/Not Resolved]
  - Weight decreased [Recovered/Resolved with Sequelae]
  - Concomitant disease aggravated [Not Recovered/Not Resolved]
  - Atrioventricular block complete [Recovering/Resolving]
  - Pulmonary arterial hypertension [Recovering/Resolving]
  - Renal impairment [Recovered/Resolved]
  - Peripheral swelling [Unknown]
  - Dysphagia [Unknown]
  - Condition aggravated [Recovering/Resolving]
  - Haematuria [Unknown]
  - Swelling face [Unknown]
  - Creatinine renal clearance decreased [Not Recovered/Not Resolved]
  - Cardiac failure [Recovering/Resolving]
  - Decreased appetite [Unknown]
  - Headache [Recovered/Resolved]
  - Dyspnoea [Recovering/Resolving]
  - Pleural effusion [Recovering/Resolving]

NARRATIVE: CASE EVENT DATE: 20180906
